FAERS Safety Report 8478470-1 (Version None)
Quarter: 2012Q2

REPORT INFORMATION
  Report Type: 
  Country: None (occurrence: None)
  Receive Date: 20120629
  Receipt Date: 20120621
  Transmission Date: 20120825
  Serious: Yes (Hospitalization, Other)
  Sender: FDA-Public Use
  Company Number: JP-ASTELLAS-2012JP004447

PATIENT
  Age: 47 Year
  Sex: Male
  Weight: 69.7 kg

DRUGS (14)
  1. PREDNISOLONE SODIUM SUCCINATE INJ [Suspect]
     Indication: COLITIS ULCERATIVE
     Dosage: UNK
     Route: 048
     Dates: start: 20100821, end: 20101130
  2. SULFASALAZINE [Concomitant]
     Indication: COLITIS ULCERATIVE
     Dosage: 500 MG, UNKNOWN/D
     Route: 054
     Dates: start: 20110411, end: 20110510
  3. IMURAN [Suspect]
     Indication: COLITIS ULCERATIVE
     Dosage: UNK
     Route: 048
     Dates: start: 20101018, end: 20101116
  4. ZITHROMAX [Concomitant]
     Indication: BRONCHITIS
     Dosage: 500 MG, UNKNOWN/D
     Route: 048
     Dates: start: 20101110, end: 20101113
  5. CRAVIT [Concomitant]
     Indication: BRONCHITIS
     Dosage: 500 MG, UNKNOWN/D
     Route: 048
     Dates: start: 20101117, end: 20101122
  6. TACROLIMUS [Suspect]
     Indication: COLITIS ULCERATIVE
     Dosage: 1.5 MG, BID
     Route: 048
     Dates: start: 20100903, end: 20100913
  7. TACROLIMUS [Suspect]
     Dosage: 1 MG, BID
     Route: 048
     Dates: start: 20100914, end: 20101110
  8. CEFOTIAM HYDROCHLORIDE [Suspect]
     Indication: PNEUMONIA
     Dosage: 2000 MG, UNKNOWN/D
     Route: 065
     Dates: start: 20101118, end: 20101123
  9. PENTASA [Concomitant]
     Indication: COLITIS ULCERATIVE
     Dosage: UNK
     Route: 048
     Dates: start: 20100816
  10. BETAMETHASONE [Concomitant]
     Indication: COLITIS ULCERATIVE
     Dosage: 1 MG, UNKNOWN/D
     Route: 054
     Dates: start: 20110427, end: 20110510
  11. FAMOTIDINE [Concomitant]
     Indication: PROPHYLAXIS
     Dosage: 40 MG, UNKNOWN/D
     Route: 048
     Dates: start: 20100908
  12. ACETAMINOPHEN [Concomitant]
     Indication: PYREXIA
     Dosage: 800 MG, PRN
     Route: 048
     Dates: start: 20101110, end: 20101122
  13. MIYA BM [Concomitant]
     Indication: COLITIS ULCERATIVE
     Dosage: 1500 MG, UNKNOWN/D
     Route: 048
     Dates: start: 20100816
  14. LANSOPRAZOLE [Concomitant]
     Indication: PROPHYLAXIS
     Dosage: 15 MG, UNKNOWN/D
     Route: 048
     Dates: start: 20100821, end: 20100907

REACTIONS (6)
  - ANAEMIA [None]
  - PNEUMONIA [None]
  - LIVER DISORDER [None]
  - BRONCHITIS [None]
  - WHITE BLOOD CELL COUNT DECREASED [None]
  - DRUG ERUPTION [None]
